FAERS Safety Report 14789984 (Version 3)
Quarter: 2018Q4

REPORT INFORMATION
  Report Type: Spontaneous
  Country: DE (occurrence: DE)
  Receive Date: 20180423
  Receipt Date: 20181109
  Transmission Date: 20190204
  Serious: Yes (Other)
  Sender: FDA-Public Use
  Company Number: DE-REGENERON PHARMACEUTICALS, INC.-2018-21862

PATIENT

DRUGS (1)
  1. EYLEA [Suspect]
     Active Substance: AFLIBERCEPT
     Indication: PRODUCT USED FOR UNKNOWN INDICATION
     Dosage: UNK, EYLEA INJECTION NO. 43;
     Route: 031
     Dates: start: 20180403

REACTIONS (7)
  - Blindness [Recovering/Resolving]
  - Injection site swelling [Unknown]
  - Physical product label issue [Unknown]
  - Product complaint [Unknown]
  - Drug ineffective [Unknown]
  - Headache [Unknown]
  - Ocular hyperaemia [Unknown]

NARRATIVE: CASE EVENT DATE: 20180403
